FAERS Safety Report 8859378 (Version 1)
Quarter: 2012Q4

REPORT INFORMATION
  Report Type: 
  Country: DE (occurrence: DE)
  Receive Date: 20121024
  Receipt Date: 20121024
  Transmission Date: 20130627
  Serious: Yes (Life-Threatening, Other)
  Sender: FDA-Public Use
  Company Number: GXKR2012DE003281

PATIENT

DRUGS (2)
  1. SERTRALINE [Suspect]
     Dosage: 50 mg/day
     Route: 048
  2. SERTRALINE [Suspect]
     Dosage: 100 mg/day
     Route: 048
     Dates: start: 201208

REACTIONS (4)
  - Circulatory collapse [Unknown]
  - Ventricular tachycardia [Unknown]
  - Dizziness [Unknown]
  - Paraesthesia [Unknown]
